FAERS Safety Report 11256210 (Version 1)
Quarter: 2015Q3

REPORT INFORMATION
  Report Type: Report from Study
  Country: US (occurrence: US)
  Receive Date: 20150709
  Receipt Date: 20150709
  Transmission Date: 20151125
  Serious: Yes (Death, Other)
  Sender: FDA-Public Use
  Company Number: US-GILEAD-2015-0162531

PATIENT
  Age: 86 Year
  Sex: Female

DRUGS (11)
  1. AMLODIPINE [Concomitant]
     Active Substance: AMLODIPINE BESYLATE
  2. TUDORZA GENUAIR [Concomitant]
  3. SILDENAFIL. [Concomitant]
     Active Substance: SILDENAFIL
  4. ASPIRIN                            /00002701/ [Concomitant]
     Active Substance: ASPIRIN
  5. LIPITOR [Concomitant]
     Active Substance: ATORVASTATIN CALCIUM
  6. POTASSIUM [Concomitant]
     Active Substance: POTASSIUM
  7. METOPROLOL [Concomitant]
     Active Substance: METOPROLOL
  8. AMBRISENTAN [Suspect]
     Active Substance: AMBRISENTAN
     Indication: PULMONARY ARTERIAL HYPERTENSION
     Dosage: 5 MG, QD
     Route: 065
     Dates: start: 20140825, end: 20150705
  9. FUROSEMIDE. [Concomitant]
     Active Substance: FUROSEMIDE
  10. TYVASO [Concomitant]
     Active Substance: TREPROSTINIL
  11. TIZANIDINE. [Concomitant]
     Active Substance: TIZANIDINE

REACTIONS (1)
  - Death [Fatal]

NARRATIVE: CASE EVENT DATE: 20150706
